FAERS Safety Report 8797656 (Version 1)
Quarter: 2012Q4

REPORT INFORMATION
  Report Type: Report from Study
  Country: CA (occurrence: CA)
  Receive Date: 20120919
  Receipt Date: 20120919
  Transmission Date: 20130627
  Serious: Yes (Other)
  Sender: FDA-Public Use
  Company Number: CA-ROCHE-1124027

PATIENT
  Age: 55 Year
  Sex: Female
  Weight: 72.64 kg

DRUGS (7)
  1. ROACTEMRA [Suspect]
     Indication: RHEUMATOID ARTHRITIS
     Route: 042
     Dates: start: 20110713
  2. OMEGA 3 [Concomitant]
     Route: 048
     Dates: start: 20100701
  3. PREDNISONE [Concomitant]
     Indication: RHEUMATOID ARTHRITIS
     Route: 065
     Dates: start: 20090701
  4. LOSEC (CANADA) [Concomitant]
     Indication: ULCER
     Route: 065
     Dates: start: 20110101
  5. TYLENOL #3 (CANADA) [Concomitant]
     Indication: PAIN
     Route: 065
     Dates: start: 20090701
  6. DIDROCAL [Concomitant]
     Route: 065
     Dates: start: 20090701
  7. SINTROM [Concomitant]
     Route: 065
     Dates: start: 20090201

REACTIONS (6)
  - Dyspnoea [Unknown]
  - Diarrhoea [Recovered/Resolved]
  - Haematochezia [Recovered/Resolved]
  - Muscle spasms [Unknown]
  - Abdominal pain upper [Unknown]
  - Paraesthesia oral [Unknown]
